FAERS Safety Report 19634200 (Version 1)
Quarter: 2021Q3

REPORT INFORMATION
  Report Type: Spontaneous
  Country: US (occurrence: US)
  Receive Date: 20210730
  Receipt Date: 20210730
  Transmission Date: 20211014
  Serious: No
  Sender: FDA-Public Use
  Company Number: US-DRREDDYS-SPO/USA/21/0138242

PATIENT
  Age: 15 Year
  Sex: Female

DRUGS (1)
  1. ZENATANE [Suspect]
     Active Substance: ISOTRETINOIN
     Indication: PRODUCT USED FOR UNKNOWN INDICATION
     Dosage: RMA ISSUE DATE: 10/MARCH/2021 11:50:03 AM , 21/APRIL/2021 3:24:25 PM, 22/MAY/2021  2:20:25 PM, 26/JU

REACTIONS (1)
  - Hepatic enzyme increased [Unknown]
